FAERS Safety Report 8439245-2 (Version None)
Quarter: 2012Q2

REPORT INFORMATION
  Report Type: 
  Country: None (occurrence: None)
  Receive Date: 20120615
  Receipt Date: 20120611
  Transmission Date: 20120825
  Serious: Yes (Other)
  Sender: FDA-Public Use
  Company Number: PHEH2011US012769

PATIENT
  Sex: Female

DRUGS (6)
  1. GILENYA [Suspect]
     Indication: MULTIPLE SCLEROSIS
     Dosage: 0.5 MG, DAILY
     Route: 048
     Dates: start: 20111208
  2. GABAPENTIN [Concomitant]
     Indication: TRIGEMINAL NEURALGIA
     Dates: start: 20111112
  3. JANUVIA [Concomitant]
     Indication: DIABETES MELLITUS
  4. ZOLOFT [Concomitant]
     Indication: DEPRESSION
     Dates: start: 20110806
  5. NUVIGIL [Concomitant]
  6. SAPHRIS [Concomitant]
     Indication: BIPOLAR DISORDER
     Dates: start: 20111102

REACTIONS (7)
  - FALL [None]
  - SKIN INJURY [None]
  - DEPRESSION [None]
  - CHEST DISCOMFORT [None]
  - DECREASED INTEREST [None]
  - PAIN IN JAW [None]
  - APATHY [None]
